FAERS Safety Report 10583886 (Version 1)
Quarter: 2014Q4

REPORT INFORMATION
  Report Type: Spontaneous
  Country: US (occurrence: None)
  Receive Date: 20141113
  Receipt Date: 20141113
  Transmission Date: 20150529
  Serious: Yes (Life-Threatening, Hospitalization, Disabling, Other)
  Sender: FDA-Public Use
  Company Number: None

PATIENT
  Sex: Male
  Weight: 106.6 kg

DRUGS (9)
  1. FLUTICASONE [Concomitant]
     Active Substance: FLUTICASONE\FLUTICASONE PROPIONATE
  2. RISPERIDONE. [Concomitant]
     Active Substance: RISPERIDONE
  3. ESCITALOPRAM [Concomitant]
     Active Substance: ESCITALOPRAM OXALATE
  4. DIVALPROEX [Concomitant]
     Active Substance: DIVALPROEX SODIUM
  5. RISPERIDONE. [Suspect]
     Active Substance: RISPERIDONE
     Dosage: 2 MG TABLETS TO BE TAKEN BY MOUTH 3 TABLETS DAILY
     Route: 048
     Dates: start: 20130509
  6. CYCLOBENZAPRINE [Concomitant]
     Active Substance: CYCLOBENZAPRINE
  7. LITHIUM CARBONATE. [Concomitant]
     Active Substance: LITHIUM CARBONATE
  8. LYRICA [Concomitant]
     Active Substance: PREGABALIN
  9. ASPIRIN. [Concomitant]
     Active Substance: ASPIRIN

REACTIONS (3)
  - Stress [None]
  - Hypoglycaemia [None]
  - Anxiety [None]
